FAERS Safety Report 8999643 (Version 2)
Quarter: 2013Q2

REPORT INFORMATION
  Report Type: Report from Study
  Country: FR (occurrence: FR)
  Receive Date: 20130103
  Receipt Date: 20130507
  Transmission Date: 20140414
  Serious: Yes (Hospitalization)
  Sender: FDA-Public Use
  Company Number: FR-BRISTOL-MYERS SQUIBB COMPANY-17247313

PATIENT
  Age: 55 Year
  Sex: Male
  Weight: 86 kg

DRUGS (22)
  1. PACLITAXEL [Suspect]
     Indication: NON-SMALL CELL LUNG CANCER
     Dosage: LAST DOSE:20NOV2012:150MG,400MG:26OCT12
     Route: 042
     Dates: start: 20121026
  2. CARBOPLATIN [Suspect]
     Indication: NON-SMALL CELL LUNG CANCER
     Dosage: LAST DOSE:20NOV2012,880MG ON 26OCT12
     Route: 042
     Dates: start: 20121026
  3. BEVACIZUMAB [Suspect]
     Indication: NON-SMALL CELL LUNG CANCER
     Dosage: LAST DOSE ON:20NOV2012
     Route: 042
     Dates: start: 20121026
  4. OXYCONTIN [Concomitant]
     Indication: CHEST PAIN
     Route: 048
     Dates: start: 20121019
  5. OXYNORM [Concomitant]
     Indication: CHEST PAIN
     Route: 048
     Dates: start: 20121019
  6. FORLAX [Concomitant]
     Indication: CONSTIPATION
     Dosage: 1DF:2UNITS
     Route: 048
     Dates: start: 20120919, end: 20130206
  7. ROCEPHINE [Concomitant]
     Indication: PYREXIA
     Route: 042
     Dates: start: 20121102, end: 20121103
  8. SOLUPRED [Concomitant]
     Indication: GASTROINTESTINAL TOXICITY
     Dosage: 02NOV2012-05NOV2012:60MG?06NOV2012-ONG:80MG
     Route: 048
     Dates: start: 20121102, end: 20121105
  9. SOLUPRED [Concomitant]
     Indication: PREMEDICATION
     Dosage: 02NOV2012-05NOV2012:60MG?06NOV2012-ONG:80MG
     Route: 048
     Dates: start: 20121102, end: 20121105
  10. OMEPRAZOLE [Concomitant]
     Indication: GASTROINTESTINAL TOXICITY
     Dosage: 20MG
     Route: 048
     Dates: start: 20121102, end: 20130109
  11. PRIMPERAN [Concomitant]
     Indication: GASTROINTESTINAL TOXICITY
     Route: 048
     Dates: start: 201210
  12. ZOPHREN [Concomitant]
     Indication: NAUSEA
     Route: 048
  13. LANSOYL [Concomitant]
     Indication: CONSTIPATION
     Dosage: 11.7MG
     Route: 048
     Dates: start: 201210
  14. POLARAMINE [Concomitant]
     Indication: RASH
     Dosage: 03NOV2012-03NOV2012:5MG?21NOV2012-22NOV2012:1G
     Route: 042
     Dates: start: 20121103, end: 20121122
  15. XYZALL [Concomitant]
     Indication: RASH
     Route: 048
     Dates: start: 20121103
  16. TAZOCILLINE [Concomitant]
     Indication: PYREXIA
     Route: 048
     Dates: start: 20121104
  17. ATARAX [Concomitant]
     Indication: RASH
     Dosage: INTRAVENOUS
     Route: 067
     Dates: start: 20121105
  18. ZYRTEC [Concomitant]
     Indication: RASH
     Dosage: 20NOV12:10MG?DEC12:10MG
     Route: 048
     Dates: start: 20121120
  19. ZYRTEC [Concomitant]
     Indication: ERYTHEMA
     Dosage: 20NOV12:10MG?DEC12:10MG
     Route: 048
     Dates: start: 20121120
  20. SOLU-MEDROL [Concomitant]
     Indication: GASTROINTESTINAL TOXICITY
     Route: 048
     Dates: start: 20121106
  21. DEXERYL [Concomitant]
     Indication: RASH
     Dates: start: 20121115, end: 20130120
  22. AUGMENTIN [Concomitant]
     Indication: SUBCUTANEOUS ABSCESS
     Route: 048
     Dates: start: 20121201, end: 20121211

REACTIONS (4)
  - Rash [Not Recovered/Not Resolved]
  - Febrile bone marrow aplasia [Recovered/Resolved]
  - Febrile neutropenia [Recovered/Resolved]
  - Rash macular [Recovered/Resolved with Sequelae]
